FAERS Safety Report 25100852 (Version 2)
Quarter: 2025Q2

REPORT INFORMATION
  Report Type: Report from Study
  Country: US (occurrence: US)
  Receive Date: 20250320
  Receipt Date: 20250527
  Transmission Date: 20250717
  Serious: Yes (Hospitalization)
  Sender: OTSUKA
  Company Number: US-OTSUKA-2025_001411

PATIENT
  Sex: Male

DRUGS (2)
  1. TOLVAPTAN [Suspect]
     Active Substance: TOLVAPTAN
     Indication: Congenital cystic kidney disease
     Dosage: 45 MG, QD (EVERY MORNING UPON WAKING)
     Route: 048
     Dates: start: 20250117, end: 2025
  2. TOLVAPTAN [Suspect]
     Active Substance: TOLVAPTAN
     Dosage: 15 MG, QD (8 H LATER)
     Route: 048
     Dates: start: 20250117, end: 2025

REACTIONS (6)
  - Renal disorder [Unknown]
  - Pollakiuria [Unknown]
  - Polyuria [Unknown]
  - Thirst [Unknown]
  - Intentional dose omission [Unknown]
  - Product dose omission issue [Unknown]
